FAERS Safety Report 12160749 (Version 2)
Quarter: 2016Q2

REPORT INFORMATION
  Report Type: Spontaneous
  Country: US (occurrence: US)
  Receive Date: 20160308
  Receipt Date: 20160418
  Transmission Date: 20160815
  Serious: Yes (Disabling, Other)
  Sender: FDA-Public Use
  Company Number: US-009507513-1603USA001298

PATIENT
  Sex: Male

DRUGS (5)
  1. KEPPRA [Concomitant]
     Active Substance: LEVETIRACETAM
  2. TEMODAR [Suspect]
     Active Substance: TEMOZOLOMIDE
     Indication: GLIOBLASTOMA MULTIFORME
     Dosage: UNK UNK, CYCLICAL
     Route: 048
     Dates: start: 2015
  3. PEPCID RPD [Concomitant]
     Active Substance: FAMOTIDINE
  4. IBRANCE [Suspect]
     Active Substance: PALBOCICLIB
     Indication: GLIOBLASTOMA MULTIFORME
     Dosage: 125 MG, UNK,, THREE CYCLES
     Dates: start: 2015
  5. FLUOXETINE [Concomitant]
     Active Substance: FLUOXETINE HYDROCHLORIDE

REACTIONS (1)
  - Glioblastoma multiforme [Unknown]

NARRATIVE: CASE EVENT DATE: 2015
